FAERS Safety Report 5007839-2 (Version None)
Quarter: 2006Q2

REPORT INFORMATION
  Report Type: 
  Country: None (occurrence: None)
  Receive Date: 20060522
  Receipt Date: 20060515
  Transmission Date: 20061013
  Serious: Yes (Other)
  Sender: FDA-Public Use
  Company Number: ZA-BRISTOL-MYERS SQUIBB COMPANY-13378054

PATIENT
  Age: 36 Year
  Sex: Female

DRUGS (3)
  1. EFAVIRENZ [Suspect]
     Indication: HIV INFECTION
     Dates: start: 20050801, end: 20050101
  2. STAVUDINE [Suspect]
     Indication: HIV INFECTION
     Dosage: STOPPED IN MAY-2005 RESTARTED 01-AUG-2005
     Dates: start: 20050510
  3. LAMIVUDINE [Suspect]
     Indication: HIV INFECTION
     Dosage: STOPPED IN MAY-2005 RESTARTED 01-AUG-2005
     Dates: start: 20050510

REACTIONS (1)
  - HAEMOLYTIC ANAEMIA [None]
